FAERS Safety Report 7724749-8 (Version None)
Quarter: 2011Q3

REPORT INFORMATION
  Report Type: 
  Country: None (occurrence: None)
  Receive Date: 20110901
  Receipt Date: 20110825
  Transmission Date: 20111222
  Serious: Yes (Other)
  Sender: FDA-Public Use
  Company Number: FR-PFIZER INC-2011197511

PATIENT
  Age: 73 Year
  Sex: Male

DRUGS (2)
  1. ZOVIRAX [Suspect]
     Indication: HERPES ZOSTER
     Dosage: UNK
     Route: 042
     Dates: start: 20110303, end: 20110401
  2. PIPERACILLIN AND TAZOBACTAM [Suspect]
     Indication: PNEUMONIA
     Dosage: UNK
     Route: 042
     Dates: start: 20110319, end: 20110329

REACTIONS (2)
  - CONVULSION [None]
  - ENCEPHALOPATHY [None]
